FAERS Safety Report 7705761-1 (Version None)
Quarter: 2011Q3

REPORT INFORMATION
  Report Type: 
  Country: None (occurrence: None)
  Receive Date: 20110824
  Receipt Date: 20110819
  Transmission Date: 20111222
  Serious: Yes (Hospitalization, Other)
  Sender: FDA-Public Use
  Company Number: CA-AMGEN-CANSP2011041255

PATIENT
  Sex: Female
  Weight: 119 kg

DRUGS (3)
  1. NEUPOGEN [Suspect]
     Indication: HAEMATOPOIETIC STEM CELL MOBILISATION
     Dosage: 10 A?G/KG, QD
     Route: 058
     Dates: start: 20110811, end: 20110812
  2. DEXAMETHASONE [Concomitant]
  3. GRANISETRON [Concomitant]

REACTIONS (8)
  - HYPERSENSITIVITY [None]
  - HYPOTENSION [None]
  - NAUSEA [None]
  - TACHYPNOEA [None]
  - DIZZINESS [None]
  - TACHYCARDIA [None]
  - HYPERHIDROSIS [None]
  - VOMITING [None]
